FAERS Safety Report 10749783 (Version 3)
Quarter: 2015Q3

REPORT INFORMATION
  Report Type: Spontaneous
  Country: US (occurrence: US)
  Receive Date: 20150129
  Receipt Date: 20150824
  Transmission Date: 20151125
  Serious: Yes (Hospitalization, Other)
  Sender: FDA-Public Use
  Company Number: US-GLAXOSMITHKLINE-US2015GSK010931

PATIENT
  Age: 54 Year
  Sex: Female
  Weight: 83.86 kg

DRUGS (2)
  1. ORLISTAT [Suspect]
     Active Substance: ORLISTAT
     Indication: PRODUCT USED FOR UNKNOWN INDICATION
     Dosage: 60 MG, TID
  2. LISINOPRIL. [Concomitant]
     Active Substance: LISINOPRIL

REACTIONS (15)
  - Ocular icterus [Unknown]
  - Asterixis [Unknown]
  - Nausea [Unknown]
  - Faeces discoloured [Unknown]
  - Aphasia [Unknown]
  - Toxicity to various agents [Unknown]
  - Confusional state [Unknown]
  - Fatigue [Unknown]
  - Asthenia [Unknown]
  - Jaundice [Unknown]
  - Pruritus [Unknown]
  - Slow speech [Unknown]
  - Chromaturia [Unknown]
  - Hepatic function abnormal [Unknown]
  - Hepatic failure [Unknown]
